FAERS Safety Report 13577426 (Version 1)
Quarter: 2017Q2

REPORT INFORMATION
  Report Type: Spontaneous
  Country: GB (occurrence: GB)
  Receive Date: 20170524
  Receipt Date: 20170524
  Transmission Date: 20170830
  Serious: Yes (Other)
  Sender: FDA-Public Use
  Company Number: GB-JNJFOC-20170518701

PATIENT
  Age: 44 Year
  Sex: Female
  Weight: 50 kg

DRUGS (1)
  1. MEBENDAZOLE. [Suspect]
     Active Substance: MEBENDAZOLE
     Indication: PRURITUS
     Route: 065

REACTIONS (1)
  - Drug reaction with eosinophilia and systemic symptoms [Recovering/Resolving]
